FAERS Safety Report 6018039-1 (Version None)
Quarter: 2008Q4

REPORT INFORMATION
  Report Type: 
  Country: None (occurrence: None)
  Receive Date: 20081223
  Receipt Date: 20081222
  Transmission Date: 20090506
  Serious: Yes (Other)
  Sender: FDA-Public Use
  Company Number: GB-WYE-G02635508

PATIENT
  Sex: Female

DRUGS (4)
  1. VENLAFAXINE HYDROCHLORIDE [Suspect]
     Indication: DEPRESSION
     Dosage: 225MG, FREQUENCY UNSPECIFIED
     Route: 048
     Dates: start: 20080601
  2. DIAZEPAM [Concomitant]
     Indication: ANXIETY
     Dosage: 4MG, FREQUENCY UNSPECIFIED
     Route: 048
  3. SEROQUEL [Concomitant]
     Indication: ANXIETY
     Dosage: 200MG, FREQUENCY UNSPECIFIED
     Route: 048
  4. ZOPICLONE [Concomitant]
     Indication: INSOMNIA
     Dosage: 7.5MG, FREQUENCY UNSPECIFIED
     Route: 048

REACTIONS (2)
  - CHEST PAIN [None]
  - PULMONARY EMBOLISM [None]
